FAERS Safety Report 4744515-5 (Version None)
Quarter: 2005Q3

REPORT INFORMATION
  Report Type: 
  Country: None (occurrence: None)
  Receive Date: 20050812
  Receipt Date: 20050802
  Transmission Date: 20060218
  Serious: Yes (Hospitalization)
  Sender: FDA-Public Use
  Company Number: US-AMGEN-US144981

PATIENT
  Sex: Male

DRUGS (17)
  1. NEULASTA [Suspect]
     Indication: CHEMOTHERAPY
     Route: 058
     Dates: start: 20050501
  2. ALLOPURINOL [Concomitant]
     Dates: end: 20050501
  3. CYCLOPHOSPHAMIDE [Concomitant]
     Route: 042
     Dates: start: 20050526
  4. DOXORUBICIN HYDROCHLORIDE [Concomitant]
     Route: 042
     Dates: start: 20050526
  5. VINCRISTINE [Concomitant]
     Dates: start: 20050526
  6. PREDNISONE [Concomitant]
     Dates: start: 20050526
  7. RITUXIMAB [Concomitant]
     Dates: start: 20050526
  8. METHOTREXATE [Concomitant]
  9. FOLIC ACID [Concomitant]
  10. RANITIDINE [Concomitant]
  11. CELEBREX [Concomitant]
  12. KYTRIL [Concomitant]
  13. HEXADROL [Concomitant]
  14. NORMAL SALINE [Concomitant]
     Route: 042
  15. TYLENOL (CAPLET) [Concomitant]
     Route: 048
  16. BENADRYL [Concomitant]
     Route: 048
  17. ZOFRAN [Concomitant]
     Route: 042

REACTIONS (13)
  - ABDOMINAL DISTENSION [None]
  - ABDOMINAL PAIN LOWER [None]
  - BLOOD LACTATE DEHYDROGENASE INCREASED [None]
  - CHILLS [None]
  - DIARRHOEA [None]
  - DIFFUSE LARGE B-CELL LYMPHOMA STAGE IV [None]
  - LETHARGY [None]
  - MALAISE [None]
  - NIGHT SWEATS [None]
  - PYREXIA [None]
  - RASH [None]
  - SPLENOMEGALY [None]
  - WEIGHT DECREASED [None]
